FAERS Safety Report 24459502 (Version 1)
Quarter: 2024Q4

REPORT INFORMATION
  Report Type: Report from Study
  Country: SE (occurrence: SE)
  Receive Date: 20241018
  Receipt Date: 20241018
  Transmission Date: 20250114
  Serious: No
  Sender: ROCHE
  Company Number: SE-ROCHE-3555114

PATIENT

DRUGS (1)
  1. RITUXIMAB [Suspect]
     Active Substance: RITUXIMAB
     Indication: Prophylaxis
     Route: 065

REACTIONS (2)
  - Polyomavirus viraemia [Unknown]
  - Cytomegalovirus infection [Unknown]
